FAERS Safety Report 8845419 (Version 1)
Quarter: 2012Q4

REPORT INFORMATION
  Report Type: Spontaneous
  Country: US (occurrence: None)
  Receive Date: 20121015
  Receipt Date: 20121015
  Transmission Date: 20130627
  Serious: Yes (Death, Hospitalization)
  Sender: FDA-Public Use
  Company Number: USA/USA/12/0026187

PATIENT
  Age: 17 Year
  Sex: Female

DRUGS (6)
  1. TACROLIMUS [Suspect]
     Indication: IMMUNOSUPPRESSION
  2. ANTHITHYMOCYTE GLOBULIN (ANTITHYMOCYTE IMMUNOGLOBULIN) [Concomitant]
  3. PREDNISONE (PREDNISONE) [Concomitant]
  4. VALGANCICLOVIR (VALGANCICLOVIR) [Concomitant]
  5. MYCOPHENOLATE MOFETIL (MYCOPHENOLATE MOFETIL) [Concomitant]
  6. SOLU MEDROL (METHYLPREDNISOLONE SODIUM SUCCINATE) [Concomitant]

REACTIONS (9)
  - Epstein-Barr virus infection [None]
  - Cytomegalovirus infection [None]
  - B-cell lymphoma [None]
  - Post transplant lymphoproliferative disorder [None]
  - Brain oedema [None]
  - Brain herniation [None]
  - Hypotension [None]
  - Multi-organ failure [None]
  - Cerebral haemorrhage [None]
